FAERS Safety Report 8843259 (Version 1)
Quarter: 2012Q4

REPORT INFORMATION
  Report Type: 
  Country: MX (occurrence: MX)
  Receive Date: 20121016
  Receipt Date: 20121016
  Transmission Date: 20130627
  Serious: Yes (Other)
  Sender: FDA-Public Use
  Company Number: PHHY2012MX091130

PATIENT
  Age: 66 Year
  Sex: Female

DRUGS (2)
  1. CO-DIOVAN [Suspect]
     Indication: HYPERTENSION
     Dosage: 1 DF (320/25 mg) Daily
     Dates: start: 200909
  2. METFORMIN [Concomitant]
     Indication: DIABETES MELLITUS
     Dosage: 2 UKN, Daily
     Dates: start: 199801

REACTIONS (2)
  - Joint injury [Not Recovered/Not Resolved]
  - Blood glucose increased [Not Recovered/Not Resolved]
